FAERS Safety Report 12433165 (Version 1)
Quarter: 2016Q2

REPORT INFORMATION
  Report Type: Spontaneous
  Country: FR (occurrence: FR)
  Receive Date: 20160603
  Receipt Date: 20160603
  Transmission Date: 20160815
  Serious: Yes (Hospitalization)
  Sender: FDA-Public Use
  Company Number: FR-CONCORDIA PHARMACEUTICALS INC.-CO-ZO-FR-2016-065

PATIENT
  Age: 53 Year
  Sex: Female
  Weight: 80 kg

DRUGS (12)
  1. ZONEGRAN [Suspect]
     Active Substance: ZONISAMIDE
     Dosage: 400MG
     Route: 048
     Dates: end: 201602
  2. VALPROATE [Concomitant]
     Active Substance: VALPROIC ACID
     Indication: PRODUCT USED FOR UNKNOWN INDICATION
     Dosage: UNKNOWN
     Route: 065
  3. ZONEGRAN [Suspect]
     Active Substance: ZONISAMIDE
     Indication: PRODUCT USED FOR UNKNOWN INDICATION
     Dosage: UNKNOWN
     Route: 048
  4. ZONEGRAN [Suspect]
     Active Substance: ZONISAMIDE
     Dosage: 300MG
     Route: 048
     Dates: start: 201602, end: 201602
  5. ZONEGRAN [Suspect]
     Active Substance: ZONISAMIDE
     Dosage: 200
     Route: 048
     Dates: start: 201602, end: 20160223
  6. KEPPRA [Concomitant]
     Active Substance: LEVETIRACETAM
     Indication: PRODUCT USED FOR UNKNOWN INDICATION
  7. FYCOMPA [Concomitant]
     Active Substance: PERAMPANEL
     Indication: PRODUCT USED FOR UNKNOWN INDICATION
     Dosage: UNKNOWN
     Route: 065
  8. KEPPRA [Concomitant]
     Active Substance: LEVETIRACETAM
     Indication: PRODUCT USED FOR UNKNOWN INDICATION
     Dosage: UNKNOWN
     Route: 065
  9. BRIVARACETAM [Suspect]
     Active Substance: BRIVARACETAM
     Indication: EPILEPSY
     Route: 048
     Dates: start: 20070606
  10. DEPAKINE CHRONO [Concomitant]
     Active Substance: VALPROATE SODIUM
     Indication: PRODUCT USED FOR UNKNOWN INDICATION
     Dosage: UNKNOWN
     Route: 065
  11. RIVOTRIL [Concomitant]
     Active Substance: CLONAZEPAM
     Indication: PRODUCT USED FOR UNKNOWN INDICATION
     Dosage: UNKNOWN
     Route: 065
  12. RIVOTRIL [Concomitant]
     Active Substance: CLONAZEPAM
     Dosage: 5 DROPS IN THE MORNING AND 10 DROPS IN THE EVENING
     Route: 065
     Dates: start: 20160209

REACTIONS (1)
  - Nephrolithiasis [Recovered/Resolved]

NARRATIVE: CASE EVENT DATE: 20160229
